FAERS Safety Report 8579714-8 (Version None)
Quarter: 2012Q3

REPORT INFORMATION
  Report Type: 
  Country: None (occurrence: None)
  Receive Date: 20120726
  Receipt Date: 20120717
  Transmission Date: 20120928
  Serious: Yes (Other)
  Sender: FDA-Public Use
  Company Number: AUR-APL-2012-03049

PATIENT
  Age: 47 Year
  Sex: Female
  Weight: 83.91 kg

DRUGS (3)
  1. RAMIPRIL [Suspect]
     Indication: HYPERTENSION
     Dosage: (10 MG), ORAL
     Route: 048
     Dates: end: 20120624
  2. AMITRIPTYLIN (AMITRIPTYLINE HYDROCHLORIDE) [Concomitant]
  3. LEVOTHYROXINE SODIUM [Concomitant]

REACTIONS (4)
  - PRODUCTIVE COUGH [None]
  - ACTIVITIES OF DAILY LIVING IMPAIRED [None]
  - MUSCLE STRAIN [None]
  - VOMITING [None]
